FAERS Safety Report 17874649 (Version 2)
Quarter: 2020Q3

REPORT INFORMATION
  Report Type: Report from Study
  Country: CN (occurrence: CN)
  Receive Date: 20200609
  Receipt Date: 20200721
  Transmission Date: 20201103
  Serious: Yes (Hospitalization)
  Sender: FDA-Public Use
  Company Number: CN-TAKEDA-2020TJP011083

PATIENT
  Age: 62 Year
  Sex: Female
  Weight: 89 kg

DRUGS (9)
  1. CEREBROPROTEIN HYDROLYSATE [Concomitant]
     Active Substance: PROTEIN HYDROLYSATE
     Indication: PROPHYLAXIS
     Dosage: 6 MILLILITER, QD
     Route: 041
     Dates: start: 20200513, end: 20200515
  2. LIGUSTRAZINE [Concomitant]
     Active Substance: LIGUSTRAZINE
     Indication: PROPHYLAXIS
     Dosage: 100 MILLILITER, QD
     Route: 041
     Dates: start: 20200513, end: 20200515
  3. TROXERUTINE [Concomitant]
     Indication: PROPHYLAXIS
     Dosage: 6 MILLILITER, QD
     Route: 041
     Dates: start: 20200513, end: 20200515
  4. ASPIRIN                            /00002701/ [Concomitant]
     Active Substance: ASPIRIN
     Indication: CARDIOVASCULAR DISORDER
     Dosage: 0.1 GRAM, QD
     Route: 048
     Dates: start: 20200319
  5. ALOGLIPTIN. [Suspect]
     Active Substance: ALOGLIPTIN
     Indication: TYPE 2 DIABETES MELLITUS
     Dosage: 25 MILLIGRAM, QD
     Route: 048
     Dates: start: 20200326
  6. ROSUVASTATIN CALCIUM. [Concomitant]
     Active Substance: ROSUVASTATIN CALCIUM
     Indication: HYPERLIPIDAEMIA
     Dosage: 10 MILLIGRAM, QD
     Route: 048
     Dates: start: 20191202
  7. METFORMIN [Concomitant]
     Active Substance: METFORMIN HYDROCHLORIDE
     Indication: TYPE 2 DIABETES MELLITUS
     Dosage: 500 MILLIGRAM, TID
     Route: 048
     Dates: start: 1999
  8. LIPANTHYL [Concomitant]
     Active Substance: FENOFIBRATE
     Indication: HYPERLIPIDAEMIA
     Dosage: 0.2 GRAM, QD
     Route: 048
     Dates: start: 20191202
  9. ASPIRIN                            /00002701/ [Concomitant]
     Active Substance: ASPIRIN
     Indication: PROPHYLAXIS

REACTIONS (1)
  - Pulmonary mass [Recovered/Resolved]

NARRATIVE: CASE EVENT DATE: 20200514
